FAERS Safety Report 8714718 (Version 4)
Quarter: 2013Q1

REPORT INFORMATION
  Report Type: Report from Study
  Country: US (occurrence: US)
  Receive Date: 20120809
  Receipt Date: 20130312
  Transmission Date: 20140127
  Serious: Yes (Hospitalization, Other)
  Sender: FDA-Public Use
  Company Number: US-US-EMD SERONO, INC.-7152402

PATIENT
  Sex: Female
  Weight: 89 kg

DRUGS (7)
  1. REBIF [Suspect]
     Indication: RELAPSING-REMITTING MULTIPLE SCLEROSIS
     Route: 058
     Dates: start: 20100119, end: 201207
  2. REBIF [Suspect]
     Dates: start: 20120729, end: 20121028
  3. STEROIDS [Concomitant]
     Indication: MULTIPLE SCLEROSIS
     Route: 048
  4. BACLOFEN [Concomitant]
     Indication: MULTIPLE SCLEROSIS
  5. OXYCODONE [Concomitant]
     Indication: MULTIPLE SCLEROSIS
     Dosage: 5-325MG
  6. OXYCODONE [Concomitant]
     Indication: PAIN
  7. ACTHAR HP [Concomitant]
     Indication: PRODUCT USED FOR UNKNOWN INDICATION

REACTIONS (8)
  - Cholelithiasis [Recovered/Resolved]
  - Bile duct obstruction [Recovered/Resolved]
  - Fibromyalgia [Unknown]
  - Blood pressure [Unknown]
  - Infected dermal cyst [Unknown]
  - Urticaria [Unknown]
  - Injection site erythema [Unknown]
  - Influenza like illness [Unknown]
